FAERS Safety Report 15890585 (Version 1)
Quarter: 2019Q1

REPORT INFORMATION
  Report Type: Spontaneous
  Country: OM (occurrence: OM)
  Receive Date: 20190130
  Receipt Date: 20190130
  Transmission Date: 20190417
  Serious: Yes (Hospitalization)
  Sender: FDA-Public Use
  Company Number: OM-MYLANLABS-2019M1007153

PATIENT
  Age: 16 Year
  Sex: Male

DRUGS (2)
  1. PALIPERIDONE. [Suspect]
     Active Substance: PALIPERIDONE
     Indication: SCHIZOPHRENIA
     Dosage: LONG ACTING INJECTION; LOADING DOSE
     Route: 065
  2. PALIPERIDONE. [Suspect]
     Active Substance: PALIPERIDONE
     Dosage: LONG ACTING INJECTION; LOADING DOSE ON DAY 8
     Route: 065

REACTIONS (2)
  - Off label use [Recovered/Resolved]
  - Post-injection delirium sedation syndrome [Recovered/Resolved]
